FAERS Safety Report 9153553 (Version 2)
Quarter: 2013Q4

REPORT INFORMATION
  Report Type: Spontaneous
  Country: GB (occurrence: None)
  Receive Date: 20130204
  Receipt Date: 20131002
  Transmission Date: 20140711
  Serious: Yes (Life-Threatening, Hospitalization, Disabling, Other)
  Sender: FDA-Public Use
  Company Number: AUR-APL-2013-01061

PATIENT
  Age: 62 Year
  Sex: Female
  Weight: 75 kg

DRUGS (15)
  1. HALOPERIDOL (HALOPERIDOL) (HALOPERIDOL) [Concomitant]
  2. LEVOTHYROXINE (LEVOTHYROXINE) [Concomitant]
  3. OLANZAPINE (OLANZAPINE) [Concomitant]
  4. PARACETAMOL (PARACETAMOL) [Concomitant]
  5. PROCYCLIDINE (PROCYCLIDINE) [Concomitant]
  6. SENNA (SENNA ALEXANDRINA) [Concomitant]
  7. TOPIRAMATE (TOPIRAMATE) [Concomitant]
  8. FLUOXETINE (FLUOXETINE) [Suspect]
     Indication: AGITATION
  9. FLUOXETINE (FLUOXETINE) [Suspect]
     Indication: DEPRESSION
  10. FLUOXETINE (FLUOXETINE) [Suspect]
  11. PHENYTOIN (PHENYTOIN) [Suspect]
     Indication: PRODUCT USED FOR UNKNOWN INDICATION
  12. CALCEOS (LEKOVIT CA0 [Concomitant]
  13. CHLORPHENAMINE (CHLORPHENAMINE) [Concomitant]
  14. CLOBAZAM (CLOBAZAM) [Concomitant]
  15. FERROUS FUMARATE (FERROUS FUMARATE) [Concomitant]

REACTIONS (4)
  - Anticonvulsant drug level increased [None]
  - Confusional state [None]
  - Coma scale abnormal [None]
  - Unresponsive to stimuli [None]
